FAERS Safety Report 4836490-X (Version None)
Quarter: 2005Q4

REPORT INFORMATION
  Report Type: 
  Country: None (occurrence: None)
  Receive Date: 20051123
  Receipt Date: 20050808
  Transmission Date: 20060501
  Serious: Yes (Hospitalization)
  Sender: FDA-Public Use
  Company Number: PHNU2005DE02817

PATIENT
  Age: 61 Year
  Sex: Female
  Weight: 77 kg

DRUGS (5)
  1. FEMARA [Suspect]
     Indication: BREAST CANCER METASTATIC
     Dosage: 2.5 MG, QD
     Route: 048
     Dates: start: 20050601, end: 20050701
  2. MINIRIN [Concomitant]
     Dosage: 0.2 MG, QD
     Route: 048
  3. L-THYROXIN [Concomitant]
     Dosage: 50 UG, QD
     Route: 048
  4. PANTOZOL [Concomitant]
     Dosage: 40 MG, QD
     Route: 048
  5. CHEMOTHERAPEUTICS,OTHER [Concomitant]
     Route: 065

REACTIONS (4)
  - ALVEOLITIS ALLERGIC [None]
  - COMPUTERISED TOMOGRAM ABNORMAL [None]
  - LUNG DISORDER [None]
  - RESPIRATORY FAILURE [None]
